FAERS Safety Report 25747888 (Version 1)
Quarter: 2025Q3

REPORT INFORMATION
  Report Type: Spontaneous
  Country: US (occurrence: US)
  Receive Date: 20250901
  Receipt Date: 20250901
  Transmission Date: 20251021
  Serious: No
  Sender: AMGEN
  Company Number: US-AMGEN-USASP2025168722

PATIENT
  Age: 81 Year
  Sex: Female

DRUGS (2)
  1. PROLIA [Suspect]
     Active Substance: DENOSUMAB
     Indication: Osteoporosis postmenopausal
     Dosage: UNK UNK, Q6MO, TRANSFUSION
     Route: 065
  2. PROLIA [Suspect]
     Active Substance: DENOSUMAB
     Dosage: UNK UNK, Q6MO, TRANSFUSION
     Route: 065
     Dates: start: 202505

REACTIONS (4)
  - Fracture [Recovered/Resolved]
  - Foot fracture [Recovered/Resolved]
  - Tooth fracture [Unknown]
  - Back pain [Recovered/Resolved]
